FAERS Safety Report 21630685 (Version 2)
Quarter: 2022Q4

REPORT INFORMATION
  Report Type: Spontaneous
  Country: US (occurrence: US)
  Receive Date: 20221123
  Receipt Date: 20221215
  Transmission Date: 20230113
  Serious: Yes (Hospitalization, Other)
  Sender: FDA-Public Use
  Company Number: US-BEH-2022152173

PATIENT
  Age: 39 Year
  Sex: Male
  Weight: 97.959 kg

DRUGS (3)
  1. PRIVIGEN [Suspect]
     Active Substance: HUMAN IMMUNOGLOBULIN G
     Indication: Polymyositis
     Dosage: 50 GRAM 2 DAYS EVERY 2 WEEKS
     Route: 042
     Dates: start: 20221110
  2. DIPHENHYDRAMINE [Concomitant]
     Active Substance: DIPHENHYDRAMINE
     Indication: Premedication
     Dosage: 2 DOSAGE FORM (50 MG)
     Route: 048
  3. ASPIRIN [Concomitant]
     Active Substance: ASPIRIN
     Indication: Premedication
     Dosage: 1 DOSAGE FORM (325 MG)
     Route: 048

REACTIONS (6)
  - Tremor [Recovered/Resolved]
  - Tachycardia [Recovered/Resolved]
  - Vomiting [Recovered/Resolved]
  - No adverse event [Unknown]
  - Off label use [Unknown]
  - Device related infection [Unknown]

NARRATIVE: CASE EVENT DATE: 20221110
